FAERS Safety Report 8804122 (Version 1)
Quarter: 2012Q4

REPORT INFORMATION
  Report Type: 
  Country: NL (occurrence: NL)
  Receive Date: 20120924
  Receipt Date: 20120924
  Transmission Date: 20130627
  Serious: Yes (Other)
  Sender: FDA-Public Use
  Company Number: NL-GLAXOSMITHKLINE-B0832527A

PATIENT
  Age: 2 Year
  Sex: Female
  Weight: 14 kg

DRUGS (3)
  1. CEFUROXIM AXETIL [Suspect]
     Indication: PNEUMONIA
     Dosage: 210MG Twice per day
     Route: 048
     Dates: start: 20120621
  2. VENTOLIN [Concomitant]
     Route: 055
     Dates: start: 20120621
  3. CEFUROXIME [Concomitant]
     Indication: PRODUCT USED FOR UNKNOWN INDICATION
     Route: 042

REACTIONS (1)
  - Tooth discolouration [Not Recovered/Not Resolved]
